FAERS Safety Report 6283469-X (Version None)
Quarter: 2009Q3

REPORT INFORMATION
  Report Type: 
  Country: None (occurrence: None)
  Receive Date: 20090724
  Receipt Date: 20090406
  Transmission Date: 20100115
  Serious: No
  Sender: FDA-Public Use
  Company Number: US-ALEXION-A200900287

PATIENT
  Sex: Female

DRUGS (3)
  1. SOLIRIS [Suspect]
     Indication: PAROXYSMAL NOCTURNAL HAEMOGLOBINURIA
     Dosage: 600 MG, QW
     Route: 042
     Dates: start: 20071029, end: 20071119
  2. SOLIRIS [Suspect]
     Dosage: 900 MG, Q2W
     Route: 042
     Dates: start: 20071126
  3. ANTIBIOTICS [Suspect]
     Indication: SINUSITIS

REACTIONS (2)
  - ADVERSE DRUG REACTION [None]
  - SINUSITIS [None]
